FAERS Safety Report 7574651-X (Version None)
Quarter: 2011Q2

REPORT INFORMATION
  Report Type: 
  Country: None (occurrence: None)
  Receive Date: 20110627
  Receipt Date: 20110616
  Transmission Date: 20111010
  Serious: Yes (Hospitalization)
  Sender: FDA-Public Use
  Company Number: US-BAXTER-2011BH016495

PATIENT
  Age: 83 Year
  Sex: Male

DRUGS (4)
  1. DIANEAL [Suspect]
     Indication: PERITONEAL DIALYSIS
     Route: 033
     Dates: start: 20110501
  2. DIANEAL [Suspect]
     Route: 033
     Dates: start: 20080101
  3. DIANEAL [Suspect]
     Route: 033
     Dates: start: 20110401
  4. OXYGEN [Concomitant]
     Indication: PRODUCT USED FOR UNKNOWN INDICATION
     Route: 065
     Dates: start: 19980101

REACTIONS (3)
  - KIDNEY INFECTION [None]
  - URINARY TRACT INFECTION [None]
  - BACTERAEMIA [None]
